FAERS Safety Report 6300652-5 (Version None)
Quarter: 2009Q3

REPORT INFORMATION
  Report Type: 
  Country: None (occurrence: None)
  Receive Date: 20090803
  Receipt Date: 20090727
  Transmission Date: 20100115
  Serious: Yes (Hospitalization)
  Sender: FDA-Public Use
  Company Number: 09FI002770

PATIENT
  Age: 75 Year
  Sex: Female

DRUGS (5)
  1. SIMVASTATIN [Suspect]
     Indication: HYPERCHOLESTEROLAEMIA
     Dosage: 40 MG, QD, ORAL, 10 MG, QD, ORAL
     Route: 048
  2. REUMACON (DEMETHYL PODOPHYLLOTOXIN BENZYLIDENE GLUCOSID, PODOPHYLLOTOX [Suspect]
     Indication: RHEUMATOID ARTHRITIS
     Dosage: 100 MG, BID
  3. PREDNISOLONE ACETATE [Concomitant]
  4. AURANOFIN [Concomitant]
  5. METHOTREXATE [Concomitant]

REACTIONS (3)
  - DRUG INTERACTION [None]
  - MUSCULAR WEAKNESS [None]
  - MYALGIA [None]
